FAERS Safety Report 18281525 (Version 1)
Quarter: 2020Q3

REPORT INFORMATION
  Report Type: Spontaneous
  Country: US (occurrence: US)
  Receive Date: 20200916
  Receipt Date: 20200916
  Transmission Date: 20201103
  Serious: No
  Sender: FDA-Public Use
  Company Number: None

PATIENT
  Age: 66 Year
  Sex: Female

DRUGS (1)
  1. BOSETAN 62.5 MG TABLETS 60/BO: (TEVA) [Suspect]
     Active Substance: BOSENTAN
     Indication: PULMONARY ARTERIAL HYPERTENSION
     Route: 048
     Dates: start: 20200807, end: 20200822

REACTIONS (7)
  - Oedema peripheral [None]
  - Paraesthesia [None]
  - Sinus tachycardia [None]
  - Blood calcium decreased [None]
  - Palpitations [None]
  - Therapy cessation [None]
  - Blood magnesium decreased [None]

NARRATIVE: CASE EVENT DATE: 20200822
